FAERS Safety Report 9694793 (Version 1)
Quarter: 2013Q4

REPORT INFORMATION
  Report Type: Spontaneous
  Country: IT (occurrence: IT)
  Receive Date: 20131119
  Receipt Date: 20131119
  Transmission Date: 20140711
  Serious: Yes (Other)
  Sender: FDA-Public Use
  Company Number: IT-JNJFOC-20131108477

PATIENT
  Age: 5 Year
  Sex: Male

DRUGS (2)
  1. IBUPROFEN [Suspect]
     Route: 048
  2. IBUPROFEN [Suspect]
     Indication: HYPERPYREXIA
     Route: 048
     Dates: start: 20131103, end: 20131104

REACTIONS (3)
  - Agitation [Recovered/Resolved]
  - Panic attack [Recovered/Resolved]
  - Hallucination [Recovered/Resolved]
